FAERS Safety Report 6556510-4 (Version None)
Quarter: 2010Q1

REPORT INFORMATION
  Report Type: 
  Country: None (occurrence: None)
  Receive Date: 20100128
  Receipt Date: 20100125
  Transmission Date: 20100710
  Serious: Yes (Death, Life-Threatening, Other)
  Sender: FDA-Public Use
  Company Number: GB-MERCK-0811GBR00045

PATIENT
  Age: 74 Year
  Sex: Male

DRUGS (9)
  1. OMEPRAZOLE [Suspect]
     Route: 048
  2. PERINDOPRIL [Suspect]
     Route: 048
  3. AMOXICILLIN [Concomitant]
     Route: 065
  4. LEVOTHYROXINE SODIUM [Concomitant]
     Route: 065
  5. ZOCOR [Suspect]
     Route: 048
  6. AMLODIPINE [Suspect]
     Route: 048
  7. ASPIRIN [Suspect]
     Route: 048
  8. IBUPROFEN [Suspect]
     Route: 048
  9. OMEPRAZOLE [Suspect]
     Route: 048

REACTIONS (14)
  - ACUTE RESPIRATORY DISTRESS SYNDROME [None]
  - ALVEOLITIS [None]
  - COUGH [None]
  - DECREASED APPETITE [None]
  - DERMATOMYOSITIS [None]
  - DRUG ERUPTION [None]
  - HAEMOPTYSIS [None]
  - LOWER RESPIRATORY TRACT INFECTION [None]
  - MUSCULAR WEAKNESS [None]
  - OROPHARYNGEAL PAIN [None]
  - RASH [None]
  - RENAL FAILURE ACUTE [None]
  - RESPIRATORY FAILURE [None]
  - WEIGHT DECREASED [None]
